FAERS Safety Report 7645133-1 (Version None)
Quarter: 2011Q3

REPORT INFORMATION
  Report Type: 
  Country: None (occurrence: None)
  Receive Date: 20110725
  Receipt Date: 20110715
  Transmission Date: 20111222
  Serious: Yes (Hospitalization, Other)
  Sender: FDA-Public Use
  Company Number: 2011ST000164

PATIENT
  Age: 20 Year
  Sex: Female
  Weight: 52.2 kg

DRUGS (11)
  1. VELCADE [Suspect]
     Indication: ACUTE LYMPHOCYTIC LEUKAEMIA
     Dosage: 1.3 MG/M**2; IV;
     Route: 042
     Dates: start: 20110617, end: 20110627
  2. CYTARABINE [Suspect]
     Indication: ACUTE LYMPHOCYTIC LEUKAEMIA
     Dosage: 70 MG, X1; INTH
     Route: 037
     Dates: start: 20110616, end: 20110616
  3. HYDROCORTISONE [Suspect]
     Indication: ACUTE LYMPHOCYTIC LEUKAEMIA
     Dates: start: 20110617
  4. PREDNISONE [Suspect]
     Dosage: 20 MG/M**2, QD, PO;
     Route: 048
     Dates: start: 20110617, end: 20110629
  5. ONCASPAR [Suspect]
     Indication: ACUTE LYMPHOCYTIC LEUKAEMIA
     Dosage: 2500 IU/M*2, X1, IM, 1500 IU/M*2, X1, IN
     Route: 030
     Dates: start: 20110701, end: 20110701
  6. ONCASPAR [Suspect]
     Indication: ACUTE LYMPHOCYTIC LEUKAEMIA
     Dosage: 2500 IU/M*2, X1, IM, 1500 IU/M*2, X1, IN
     Route: 030
     Dates: start: 20110617, end: 20110623
  7. DOXORUBICIN HCL [Suspect]
     Indication: ACUTE LYMPHOCYTIC LEUKAEMIA
     Dosage: 50 MG/M**2, X1, IV
     Route: 042
     Dates: start: 20110617, end: 20110617
  8. METHOTREXATE [Suspect]
     Indication: ACUTE LYMPHOCYTIC LEUKAEMIA
     Dosage: INTH; INTH
     Route: 037
     Dates: start: 20110701
  9. METHOTREXATE [Suspect]
     Indication: ACUTE LYMPHOCYTIC LEUKAEMIA
     Dosage: INTH; INTH
     Route: 037
     Dates: start: 20110617
  10. VINCRISTINE [Suspect]
     Indication: ACUTE LYMPHOCYTIC LEUKAEMIA
     Dosage: 1.5 MG/M**2, IV; 1.5 MG/M*2, IV;
     Route: 042
     Dates: start: 20110617
  11. VINCRISTINE [Suspect]
     Indication: ACUTE LYMPHOCYTIC LEUKAEMIA
     Dosage: 1.5 MG/M**2, IV; 1.5 MG/M*2, IV;
     Route: 042
     Dates: start: 20110701

REACTIONS (6)
  - ABDOMINAL PAIN [None]
  - HYPOCALCAEMIA [None]
  - HYPOALBUMINAEMIA [None]
  - PANCYTOPENIA [None]
  - FEBRILE NEUTROPENIA [None]
  - HYPOTENSION [None]
